FAERS Safety Report 23919518 (Version 1)
Quarter: 2024Q2

REPORT INFORMATION
  Report Type: Spontaneous
  Country: ES (occurrence: ES)
  Receive Date: 20240530
  Receipt Date: 20240530
  Transmission Date: 20240716
  Serious: Yes (Death)
  Sender: FDA-Public Use
  Company Number: None

PATIENT
  Age: 74 Year
  Sex: Male
  Weight: 61 kg

DRUGS (1)
  1. METHYLPREDNISOLONE SODIUM SUCCINATE [Suspect]
     Active Substance: METHYLPREDNISOLONE SODIUM SUCCINATE
     Indication: Acute respiratory failure
     Dosage: 40 MG, 1X/DAY
     Route: 042
     Dates: start: 20240422

REACTIONS (2)
  - Hyperglycaemia [Fatal]
  - Off label use [Unknown]

NARRATIVE: CASE EVENT DATE: 20240422
